FAERS Safety Report 9504411 (Version 1)
Quarter: 2013Q3

REPORT INFORMATION
  Report Type: Spontaneous
  Country: US (occurrence: US)
  Receive Date: 20130906
  Receipt Date: 20130906
  Transmission Date: 20140515
  Serious: Yes (Other)
  Sender: FDA-Public Use
  Company Number: US-BRISTOL-MYERS SQUIBB COMPANY-19231471

PATIENT
  Age: 60 Year
  Sex: Male
  Weight: 113.38 kg

DRUGS (1)
  1. SPRYCEL (CML) TABS 100 MG [Suspect]
     Indication: CHRONIC MYELOID LEUKAEMIA
     Dates: start: 2008

REACTIONS (3)
  - Pleural effusion [Unknown]
  - Atelectasis [Unknown]
  - Bronchitis [Unknown]
